FAERS Safety Report 6018924-0 (Version None)
Quarter: 2008Q4

REPORT INFORMATION
  Report Type: 
  Country: None (occurrence: None)
  Receive Date: 20081224
  Receipt Date: 20081215
  Transmission Date: 20090506
  Serious: Yes (Death)
  Sender: FDA-Public Use
  Company Number: US-PFIZER INC-2008153648

PATIENT
  Age: 23 Year
  Sex: Female

DRUGS (1)
  1. VERAPAMIL HCL [Suspect]
     Route: 048

REACTIONS (1)
  - ACCIDENTAL EXPOSURE [None]
